FAERS Safety Report 10118032 (Version 2)
Quarter: 2014Q2

REPORT INFORMATION
  Report Type: Spontaneous
  Country: US (occurrence: US)
  Receive Date: 20140425
  Receipt Date: 20140425
  Transmission Date: 20141212
  Serious: No
  Sender: FDA-Public Use
  Company Number: US-GILEAD-2013-0077777

PATIENT
  Age: 44 Year
  Sex: Female

DRUGS (6)
  1. ATRIPLA [Suspect]
     Indication: PRODUCT USED FOR UNKNOWN INDICATION
     Dosage: 1 DF, QD
     Dates: start: 2011
  2. TRUVADA [Suspect]
     Indication: PRODUCT USED FOR UNKNOWN INDICATION
  3. REYATAZ [Suspect]
     Indication: PRODUCT USED FOR UNKNOWN INDICATION
     Dosage: 1 DF, QD
  4. TOPAMAX [Concomitant]
     Indication: CONVULSION
  5. LASIX                              /00032601/ [Concomitant]
     Indication: HYPERTENSION
  6. POTASSIUM [Concomitant]
     Indication: HYPERTENSION

REACTIONS (5)
  - Jaundice [Unknown]
  - Pyrexia [Unknown]
  - Paranoia [Unknown]
  - Vomiting [Unknown]
  - Nausea [Unknown]
